FAERS Safety Report 19823738 (Version 1)
Quarter: 2021Q3

REPORT INFORMATION
  Report Type: Spontaneous
  Country: US (occurrence: US)
  Receive Date: 20210914
  Receipt Date: 20210914
  Transmission Date: 20211014
  Serious: Yes (Other)
  Sender: FDA-Public Use
  Company Number: US-BRISTOL-MYERS SQUIBB COMPANY-BMS-2021-089663

PATIENT
  Age: 79 Year
  Sex: Male

DRUGS (15)
  1. AZACITIDINE. [Suspect]
     Active Substance: AZACITIDINE
     Indication: MYELODYSPLASTIC SYNDROME
     Dosage: CYCLE 1
     Route: 065
     Dates: start: 20200127, end: 20200204
  2. AZACITIDINE. [Suspect]
     Active Substance: AZACITIDINE
     Dosage: CYCLE 3
     Route: 065
     Dates: start: 20200326, end: 20200403
  3. AZACITIDINE. [Suspect]
     Active Substance: AZACITIDINE
     Dosage: CYCLE 2
     Route: 065
     Dates: start: 20200226, end: 20200305
  4. AZACITIDINE. [Suspect]
     Active Substance: AZACITIDINE
     Dosage: CYCLE 8 (125 MG, ?55 MG/M2)
     Route: 065
     Dates: start: 20200819, end: 20200827
  5. AZACITIDINE. [Suspect]
     Active Substance: AZACITIDINE
     Dosage: CYCLE 12
     Route: 065
     Dates: start: 20210204, end: 20210212
  6. ELIQUIS [Suspect]
     Active Substance: APIXABAN
     Indication: PRODUCT USED FOR UNKNOWN INDICATION
     Dosage: 5 MILLIGRAM
     Route: 065
  7. AZACITIDINE. [Suspect]
     Active Substance: AZACITIDINE
     Dosage: CYCLE 6
     Route: 065
     Dates: start: 202006
  8. AZACITIDINE. [Suspect]
     Active Substance: AZACITIDINE
     Dosage: CYCLE 11
     Route: 065
     Dates: start: 20201207, end: 20201215
  9. AZACITIDINE. [Suspect]
     Active Substance: AZACITIDINE
     Dosage: CYCLE 5
     Route: 065
     Dates: start: 20200527, end: 20200604
  10. AZACITIDINE. [Suspect]
     Active Substance: AZACITIDINE
     Dosage: CYCLE 10 (85 MG, ?40 MG/M2)
     Route: 065
     Dates: start: 20201019, end: 20201027
  11. AZACITIDINE. [Suspect]
     Active Substance: AZACITIDINE
     Dosage: CYCLE 13 INCREASED TO 120MG (53 MG/M2)
     Route: 065
     Dates: start: 20210304, end: 20210312
  12. EPOETIN [Concomitant]
     Active Substance: ERYTHROPOIETIN
     Indication: PRODUCT USED FOR UNKNOWN INDICATION
     Dosage: UNK
     Route: 065
  13. AZACITIDINE. [Suspect]
     Active Substance: AZACITIDINE
     Dosage: CYCLE 7 (75 MG/M2/DAY)
     Route: 065
     Dates: start: 20200722, end: 20200730
  14. AZACITIDINE. [Suspect]
     Active Substance: AZACITIDINE
     Dosage: CYCLE 4
     Route: 065
     Dates: start: 20200427, end: 20200505
  15. AZACITIDINE. [Suspect]
     Active Substance: AZACITIDINE
     Dosage: CYCLE 9
     Route: 065
     Dates: start: 20200921, end: 20200929

REACTIONS (2)
  - Cytopenia [Unknown]
  - Cytogenetic abnormality [Unknown]

NARRATIVE: CASE EVENT DATE: 2021
